FAERS Safety Report 8000972-2 (Version None)
Quarter: 2011Q4

REPORT INFORMATION
  Report Type: 
  Country: None (occurrence: None)
  Receive Date: 20111219
  Receipt Date: 20111205
  Transmission Date: 20120403
  Serious: Yes (Hospitalization)
  Sender: FDA-Public Use
  Company Number: 2011MA017407

PATIENT
  Sex: Male
  Weight: 109.7705 kg

DRUGS (11)
  1. SPIRIVA [Concomitant]
  2. AVODART [Concomitant]
  3. ALBUTEROL [Concomitant]
  4. APAP TAB [Concomitant]
  5. XOPENEX [Concomitant]
  6. PREVACID [Concomitant]
  7. ADVAIR DISKUS 100/50 [Concomitant]
  8. ZESTRIL [Concomitant]
  9. MULTI-VITAMIN [Concomitant]
  10. DIGOXIN [Suspect]
     Indication: PRODUCT USED FOR UNKNOWN INDICATION
     Dosage: 0.25 MG;QD;PO
     Route: 048
     Dates: start: 20060217, end: 20081008
  11. CARDIZEM [Concomitant]

REACTIONS (11)
  - ARTHRITIS [None]
  - SICK SINUS SYNDROME [None]
  - DYSPNOEA [None]
  - CARDIOMYOPATHY [None]
  - MUSCLE SPASMS [None]
  - CONTUSION [None]
  - ASTHMA [None]
  - FATIGUE [None]
  - PNEUMONIA [None]
  - DYSPNOEA EXERTIONAL [None]
  - HYPERTENSION [None]
